FAERS Safety Report 16018786 (Version 1)
Quarter: 2019Q1

REPORT INFORMATION
  Report Type: Spontaneous
  Country: US (occurrence: US)
  Receive Date: 20190228
  Receipt Date: 20190228
  Transmission Date: 20190418
  Serious: No
  Sender: FDA-Public Use
  Company Number: US-VALIDUS PHARMACEUTICALS LLC-US-2018VAL000884

PATIENT
  Sex: Female
  Weight: 123.81 kg

DRUGS (2)
  1. LASIX [Suspect]
     Active Substance: FUROSEMIDE
     Indication: FLUID RETENTION
     Dosage: 80 MG, UNK
  2. LASIX [Suspect]
     Active Substance: FUROSEMIDE
     Indication: WEIGHT INCREASED

REACTIONS (1)
  - Drug ineffective [Unknown]
